FAERS Safety Report 8393445-9 (Version None)
Quarter: 2012Q2

REPORT INFORMATION
  Report Type: 
  Country: None (occurrence: None)
  Receive Date: 20120529
  Receipt Date: 20120514
  Transmission Date: 20120825
  Serious: Yes (Other)
  Sender: FDA-Public Use
  Company Number: CHPA2012US010985

PATIENT
  Age: 63 Year
  Sex: Female

DRUGS (3)
  1. EXCEDRIN EXTRA STRENGTH TABLETS [Suspect]
     Indication: HEADACHE
     Dosage: 1.5 DF, PRN
     Route: 048
     Dates: start: 19720101
  2. COZAAR [Concomitant]
     Dosage: 25 MG, QD
  3. SYNTHROID [Concomitant]
     Dosage: UNK %, UNK

REACTIONS (5)
  - FRACTURE [None]
  - ABDOMINAL PAIN UPPER [None]
  - WRONG TECHNIQUE IN DRUG USAGE PROCESS [None]
  - UNDERDOSE [None]
  - POLLAKIURIA [None]
